FAERS Safety Report 9570852 (Version 1)
Quarter: 2013Q4

REPORT INFORMATION
  Report Type: Spontaneous
  Country: FI (occurrence: FI)
  Receive Date: 20131001
  Receipt Date: 20131001
  Transmission Date: 20140711
  Serious: Yes (Death, Hospitalization)
  Sender: FDA-Public Use
  Company Number: FI-ROCHE-1281600

PATIENT
  Age: 68 Year
  Sex: Female

DRUGS (4)
  1. HERCEPTIN [Suspect]
     Indication: BREAST CANCER
     Route: 042
     Dates: start: 20130404
  2. DOCETAXEL [Suspect]
     Indication: BREAST CANCER
     Dosage: 148MG/3 INTRAVENOUS
     Route: 042
     Dates: start: 20130404, end: 20130516
  3. LISIPRIL [Concomitant]
     Indication: HYPERTENSION
     Route: 048
  4. LINATIL [Concomitant]
     Indication: HYPERTENSION
     Route: 065

REACTIONS (3)
  - Pulmonary fibrosis [Fatal]
  - Pneumonia [Fatal]
  - Pneumocystis jirovecii infection [Fatal]
